FAERS Safety Report 16349991 (Version 1)
Quarter: 2019Q2

REPORT INFORMATION
  Report Type: Spontaneous
  Country: ES (occurrence: ES)
  Receive Date: 20190523
  Receipt Date: 20190523
  Transmission Date: 20190711
  Serious: Yes (Death, Life-Threatening, Hospitalization)
  Sender: FDA-Public Use
  Company Number: PHHY2019ES112362

PATIENT
  Age: 36 Year
  Sex: Female

DRUGS (4)
  1. INTERFERON BETA-1A [Suspect]
     Active Substance: INTERFERON BETA-1A
     Indication: RELAPSING-REMITTING MULTIPLE SCLEROSIS
     Dosage: UNK
     Route: 065
     Dates: start: 201106
  2. METHYLPREDNISOLONE. [Suspect]
     Active Substance: METHYLPREDNISOLONE
     Dosage: UNK
     Route: 065
     Dates: start: 201203
  3. METHYLPREDNISOLONE. [Suspect]
     Active Substance: METHYLPREDNISOLONE
     Indication: SECONDARY PROGRESSIVE MULTIPLE SCLEROSIS
     Dosage: 1 G, EVERY 3 MONTHS
     Route: 040
     Dates: start: 200903
  4. METHYLPREDNISOLONE. [Suspect]
     Active Substance: METHYLPREDNISOLONE
     Dosage: UNK
     Route: 065
     Dates: start: 201206

REACTIONS (13)
  - Subarachnoid haemorrhage [Fatal]
  - Headache [Fatal]
  - Diplopia [Fatal]
  - Basilar artery aneurysm [Fatal]
  - Product use in unapproved indication [Unknown]
  - Scedosporium infection [Fatal]
  - Quadriplegia [Fatal]
  - Ruptured cerebral aneurysm [Fatal]
  - Ischaemic stroke [Fatal]
  - Basilar artery thrombosis [Fatal]
  - Consciousness fluctuating [Fatal]
  - Hydrocephalus [Fatal]
  - Confusional state [Fatal]

NARRATIVE: CASE EVENT DATE: 201207
